FAERS Safety Report 25275218 (Version 1)
Quarter: 2025Q2

REPORT INFORMATION
  Report Type: Spontaneous
  Country: JP (occurrence: JP)
  Receive Date: 20250506
  Receipt Date: 20250506
  Transmission Date: 20250717
  Serious: Yes (Other)
  Sender: MERCK SHARP & DOHME LLC
  Company Number: JP-009507513-2282424

PATIENT
  Age: 74 Year
  Sex: Male

DRUGS (2)
  1. KEYTRUDA [Suspect]
     Active Substance: PEMBROLIZUMAB
     Indication: Ureteric cancer
  2. ENFORTUMAB VEDOTIN [Suspect]
     Active Substance: ENFORTUMAB VEDOTIN
     Indication: Ureteric cancer

REACTIONS (9)
  - Neuropathy peripheral [Unknown]
  - Pyrexia [Unknown]
  - Hyponatraemia [Unknown]
  - Liver disorder [Unknown]
  - Hypoaesthesia [Unknown]
  - Rash [Unknown]
  - Pruritus [Unknown]
  - Pyoderma [Unknown]
  - Therapy partial responder [Unknown]
